FAERS Safety Report 22394600 (Version 1)
Quarter: 2023Q2

REPORT INFORMATION
  Report Type: Spontaneous
  Country: FR (occurrence: FR)
  Receive Date: 20230601
  Receipt Date: 20230601
  Transmission Date: 20230721
  Serious: Yes (Other)
  Sender: FDA-Public Use
  Company Number: None

PATIENT
  Age: 4 Day
  Sex: Female

DRUGS (2)
  1. DEXTROSE MONOHYDRATE [Suspect]
     Active Substance: DEXTROSE MONOHYDRATE
     Indication: Infusion
     Dosage: 1 DOSAGE FORM  {DF}
     Route: 042
     Dates: start: 20230520
  2. CALCIUM GLUCONATE [Suspect]
     Active Substance: CALCIUM GLUCONATE
     Indication: Infusion
     Dosage: 1 DOSAGE FORM  {DF}
     Route: 042
     Dates: start: 20230520

REACTIONS (1)
  - Extravasation [Recovering/Resolving]

NARRATIVE: CASE EVENT DATE: 20230520
